FAERS Safety Report 25605347 (Version 1)
Quarter: 2025Q3

REPORT INFORMATION
  Report Type: Spontaneous
  Country: US (occurrence: None)
  Receive Date: 20250724
  Receipt Date: 20250724
  Transmission Date: 20251021
  Serious: Yes (Hospitalization)
  Sender: FDA-CTU
  Company Number: None

PATIENT
  Age: 22 Year
  Sex: Male
  Weight: 53.25 kg

DRUGS (11)
  1. SIROLIMUS [Suspect]
     Active Substance: SIROLIMUS
     Indication: Heart transplant
     Dosage: FREQUENCY : DAILY;?
     Route: 048
     Dates: start: 20240109
  2. NAYZILAM [Concomitant]
     Active Substance: MIDAZOLAM
     Dates: start: 20241201
  3. SCOPALMINE [Concomitant]
     Dates: start: 20240901
  4. TOBRAMYCIN [Concomitant]
     Active Substance: TOBRAMYCIN
  5. APT OM 400MG TABLETS [Concomitant]
  6. LEVETIRACETAM 1 00MG/ML SOLUTION [Concomitant]
  7. ASPIRIN [Concomitant]
     Active Substance: ASPIRIN
  8. BACTRIM DS (800-160MG) TABLETS [Concomitant]
  9. DILTIAZEM [Concomitant]
     Active Substance: DILTIAZEM
  10. LISINOPRIL [Concomitant]
     Active Substance: LISINOPRIL
  11. OMEPRAZOLE [Concomitant]
     Active Substance: OMEPRAZOLE

REACTIONS (1)
  - Blood calcium increased [None]

NARRATIVE: CASE EVENT DATE: 20250716
